FAERS Safety Report 9284383 (Version 1)
Quarter: 2013Q2

REPORT INFORMATION
  Report Type: Spontaneous
  Country: US (occurrence: US)
  Receive Date: 20130510
  Receipt Date: 20130510
  Transmission Date: 20140414
  Serious: Yes (Hospitalization)
  Sender: FDA-Public Use
  Company Number: US-B.I. PHARMACEUTICALS,INC./RIDGEFIELD-2013-BI-12059BP

PATIENT
  Age: 79 Year
  Sex: Female
  Weight: 45 kg

DRUGS (2)
  1. COMBIVENT [Suspect]
     Indication: CARDIAC FAILURE CONGESTIVE
     Route: 055
     Dates: start: 201203, end: 201204
  2. COMBIVENT [Suspect]
     Route: 055
     Dates: start: 201301

REACTIONS (1)
  - Cerebrovascular accident [Recovered/Resolved with Sequelae]
